FAERS Safety Report 25173106 (Version 9)
Quarter: 2025Q4

REPORT INFORMATION
  Report Type: Report from Study
  Country: IN (occurrence: IN)
  Receive Date: 20250408
  Receipt Date: 20251219
  Transmission Date: 20260117
  Serious: Yes (Other)
  Sender: NOVARTIS
  Company Number: IN-002147023-NVSC2024IN136717

PATIENT
  Age: 53 Year
  Sex: Female
  Weight: 38 kg

DRUGS (1)
  1. RIBOCICLIB [Suspect]
     Active Substance: RIBOCICLIB
     Indication: Breast cancer metastatic
     Dosage: 600 MG, QD
     Route: 048
     Dates: start: 20240428

REACTIONS (33)
  - Invasive lobular breast carcinoma [Unknown]
  - Breast cancer recurrent [Unknown]
  - Lymphadenopathy mediastinal [Unknown]
  - Electrocardiogram QT interval abnormal [Unknown]
  - Metastasis [Unknown]
  - Hypothyroidism [Unknown]
  - Pyrexia [Unknown]
  - Chills [Unknown]
  - Hypophagia [Unknown]
  - Dysuria [Unknown]
  - Cough [Unknown]
  - Nasopharyngitis [Unknown]
  - Asthenia [Unknown]
  - Platelet count decreased [Unknown]
  - Decreased appetite [Unknown]
  - Bone lesion [Unknown]
  - Hypertension [Unknown]
  - Haemoglobin abnormal [Unknown]
  - White blood cell count abnormal [Unknown]
  - High density lipoprotein decreased [Unknown]
  - Low density lipoprotein abnormal [Unknown]
  - Blood triglycerides abnormal [Unknown]
  - Blood creatinine abnormal [Unknown]
  - Blood calcium abnormal [Unknown]
  - Blood bilirubin abnormal [Unknown]
  - Laboratory test abnormal [Unknown]
  - Mean cell volume increased [Unknown]
  - Mean cell haemoglobin increased [Unknown]
  - Red blood cell count decreased [Unknown]
  - Full blood count abnormal [Unknown]
  - Heart rate abnormal [Unknown]
  - Blood pressure abnormal [Unknown]
  - Weight abnormal [Unknown]

NARRATIVE: CASE EVENT DATE: 20250212
